FAERS Safety Report 18991508 (Version 1)
Quarter: 2021Q1

REPORT INFORMATION
  Report Type: Spontaneous
  Country: DE (occurrence: DE)
  Receive Date: 20210310
  Receipt Date: 20210310
  Transmission Date: 20210420
  Serious: Yes (Hospitalization)
  Sender: FDA-Public Use
  Company Number: DE-TEVA-2021-DE-1887299

PATIENT
  Age: 43 Year
  Sex: Female

DRUGS (8)
  1. PEMBROLIZUMAB. [Suspect]
     Active Substance: PEMBROLIZUMAB
     Dosage: LAST 16012020
     Route: 065
  2. COLECALCIFEROL (VITAMIN D) [Concomitant]
     Active Substance: CHOLECALCIFEROL
     Dosage: 100 IU (INTERNATIONAL UNIT) DAILY; 1?0?0?0
  3. FOLSAURE [Concomitant]
     Active Substance: FOLIC ACID
     Dosage: 10 MILLIGRAM DAILY; 1?0?0?0
  4. METAMIZOL [Concomitant]
     Active Substance: METAMIZOLE SODIUM
     Dosage: IF NECESSARY
  5. LACTULOSE. [Concomitant]
     Active Substance: LACTULOSE
     Dosage: IF NECESSARY
  6. PANTOPRAZOL [Concomitant]
     Active Substance: PANTOPRAZOLE SODIUM
     Dosage: 40 MILLIGRAM DAILY;  1?0?0?0
  7. PEMETREXED. [Suspect]
     Active Substance: PEMETREXED
     Dosage: LAST 16012020
     Route: 065
  8. METOCLOPRAMID [Concomitant]
     Active Substance: METOCLOPRAMIDE
     Dosage: IF NECESSARY

REACTIONS (7)
  - Dyspnoea [Unknown]
  - Pneumonia [Unknown]
  - Localised infection [Unknown]
  - Pyrexia [Unknown]
  - Abdominal distension [Unknown]
  - General physical health deterioration [Unknown]
  - Cough [Unknown]
